FAERS Safety Report 24322662 (Version 1)
Quarter: 2024Q3

REPORT INFORMATION
  Report Type: Spontaneous
  Country: FR (occurrence: FR)
  Receive Date: 20240916
  Receipt Date: 20240916
  Transmission Date: 20241016
  Serious: Yes (Hospitalization)
  Sender: CHEPLAPHARM
  Company Number: None

PATIENT
  Age: 55 Year
  Sex: Female

DRUGS (7)
  1. OLANZAPINE [Suspect]
     Active Substance: OLANZAPINE
     Indication: Bipolar disorder
     Dosage: DAILY DOSE: 5 MILLIGRAM
     Dates: start: 20240806, end: 20240822
  2. OLANZAPINE [Suspect]
     Active Substance: OLANZAPINE
     Indication: Bipolar disorder
     Dosage: DAILY DOSE: 10 MILLIGRAM
     Dates: start: 20240822
  3. MIRTAZAPINE [Suspect]
     Active Substance: MIRTAZAPINE
     Indication: Bipolar disorder
     Dosage: DAILY DOSE: 30 MILLIGRAM
     Dates: start: 20240806, end: 20240822
  4. XANAX [Concomitant]
     Active Substance: ALPRAZOLAM
     Dosage: 0.5 X2/D?DAILY DOSE: 0.5 MILLIGRAM
  5. DEPAKOTE [Concomitant]
     Active Substance: DIVALPROEX SODIUM
     Indication: Bipolar disorder
     Dosage: 250MG IN THE EVENING/500 MG MORNING AND EVENING?DAILY DOSE: 1250 MILLIGRAM
     Dates: start: 2020, end: 20240806
  6. DEPAKOTE [Concomitant]
     Active Substance: DIVALPROEX SODIUM
     Indication: Bipolar disorder
     Dosage: 250 MG X2/D?DAILY DOSE: 500 MILLIGRAM
  7. MIANSERIN [Concomitant]
     Active Substance: MIANSERIN
     Dosage: 30 MG X1/D?DAILY DOSE: 30 MILLIGRAM

REACTIONS (2)
  - Generalised tonic-clonic seizure [Recovering/Resolving]
  - Haematoma [Unknown]

NARRATIVE: CASE EVENT DATE: 20240819
